FAERS Safety Report 24593994 (Version 1)
Quarter: 2024Q4

REPORT INFORMATION
  Report Type: Spontaneous
  Country: US (occurrence: None)
  Receive Date: 20241108
  Receipt Date: 20241108
  Transmission Date: 20250115
  Serious: Yes (Life-Threatening)
  Sender: Public
  Company Number: None

PATIENT
  Age: 34 Year
  Sex: Female
  Weight: 81 kg

DRUGS (1)
  1. EPINEPHRINE\LIDOCAINE HYDROCHLORIDE [Suspect]
     Active Substance: EPINEPHRINE\LIDOCAINE HYDROCHLORIDE
     Indication: Local anaesthesia
     Dosage: FREQUENCY : AS NEEDED;?
     Route: 061

REACTIONS (4)
  - Physical product label issue [None]
  - Infection [None]
  - Intentional product misuse [None]
  - Product use issue [None]

NARRATIVE: CASE EVENT DATE: 20241101
